APPROVED DRUG PRODUCT: LATUDA
Active Ingredient: LURASIDONE HYDROCHLORIDE
Strength: 80MG
Dosage Form/Route: TABLET;ORAL
Application: N200603 | Product #002 | TE Code: AB
Applicant: SUNOVION PHARMACEUTICALS INC
Approved: Oct 28, 2010 | RLD: Yes | RS: No | Type: RX

PATENTS:
Patent 9259423 | Expires: May 23, 2031
Patent 9827242 | Expires: May 23, 2031
Patent 9555027 | Expires: May 26, 2026
Patent 9827242 | Expires: May 23, 2031
Patent 8729085 | Expires: May 26, 2026
Patent 8883794 | Expires: May 26, 2026
Patent 9907794 | Expires: May 26, 2026
Patent 8883794*PED | Expires: Nov 26, 2026
Patent 8729085*PED | Expires: Nov 26, 2026
Patent 9907794*PED | Expires: Nov 26, 2026
Patent 9259423*PED | Expires: Nov 23, 2031